FAERS Safety Report 20196633 (Version 7)
Quarter: 2022Q1

REPORT INFORMATION
  Report Type: Spontaneous
  Country: CA (occurrence: CA)
  Receive Date: 20211216
  Receipt Date: 20220126
  Transmission Date: 20220423
  Serious: Yes (Other)
  Sender: FDA-Public Use
  Company Number: CA-CELLTRION INC.-2021CA017205

PATIENT

DRUGS (8)
  1. INFLECTRA [Suspect]
     Active Substance: INFLIXIMAB-DYYB
     Indication: Crohn^s disease
     Dosage: 1 DF
  2. INFLECTRA [Suspect]
     Active Substance: INFLIXIMAB-DYYB
     Dosage: 5 MG/KG, EVERY 0, 4, 6 WEEKS THEN EVERY 8 WEEKS
     Route: 042
     Dates: start: 20211104
  3. INFLECTRA [Suspect]
     Active Substance: INFLIXIMAB-DYYB
     Dosage: 5 MG/KG, EVERY 0, 4, 6 WEEKS THEN EVERY 8 WEEKS
     Dates: start: 20211209, end: 202112
  4. INFLECTRA [Suspect]
     Active Substance: INFLIXIMAB-DYYB
     Dosage: 5 MG/KG WEEK 0,4,8 THEN Q 8 WEEKS - TO RESTART
     Dates: start: 20220111
  5. PREDNISONE [Suspect]
     Active Substance: PREDNISONE
     Dosage: 15 MG, FOR TWO WEEKS
  6. PREDNISONE [Suspect]
     Active Substance: PREDNISONE
     Dosage: 5MG, WEEKLY
  7. DIPHENHYDRAMINE [Concomitant]
     Active Substance: DIPHENHYDRAMINE
     Indication: Premedication
     Dosage: 25-50MG
  8. HYDROCORTISONE [Concomitant]
     Active Substance: HYDROCORTISONE
     Indication: Premedication
     Dosage: 100 MG

REACTIONS (21)
  - Uveitis [Not Recovered/Not Resolved]
  - Off label use [Unknown]
  - Inappropriate schedule of product administration [Unknown]
  - Pyrexia [Not Recovered/Not Resolved]
  - Condition aggravated [Not Recovered/Not Resolved]
  - Colitis [Unknown]
  - Diarrhoea [Unknown]
  - Abdominal pain [Unknown]
  - Conjunctivitis [Not Recovered/Not Resolved]
  - Ocular hyperaemia [Not Recovered/Not Resolved]
  - Secretion discharge [Not Recovered/Not Resolved]
  - Malaise [Recovered/Resolved]
  - Flushing [Recovered/Resolved]
  - Nausea [Recovered/Resolved]
  - Chest discomfort [Recovered/Resolved]
  - Dyspnoea [Recovered/Resolved]
  - Hypersensitivity [Unknown]
  - Erythema [Unknown]
  - Body temperature increased [Not Recovered/Not Resolved]
  - Hot flush [Recovered/Resolved]
  - Chest discomfort [Recovered/Resolved]

NARRATIVE: CASE EVENT DATE: 20210101
